FAERS Safety Report 9485326 (Version 9)
Quarter: 2016Q4

REPORT INFORMATION
  Report Type: Spontaneous
  Country: CA (occurrence: CA)
  Receive Date: 20130828
  Receipt Date: 20161003
  Transmission Date: 20170207
  Serious: Yes (Other)
  Sender: FDA-Public Use
  Company Number: CA-ROCHE-1265337

PATIENT
  Age: 43 Year
  Sex: Female

DRUGS (16)
  1. OMNARIS [Concomitant]
     Active Substance: CICLESONIDE
  2. VENTOLIN [Concomitant]
     Active Substance: ALBUTEROL SULFATE
     Indication: CHEST DISCOMFORT
     Dosage: 2 PUFFS
     Route: 065
  3. XOLAIR [Suspect]
     Active Substance: OMALIZUMAB
     Route: 058
     Dates: end: 20141002
  4. ZENHALE [Concomitant]
     Active Substance: FORMOTEROL FUMARATE\MOMETASONE FUROATE
     Route: 065
  5. CLINDAMYCIN HYDROCHLORIDE. [Concomitant]
     Active Substance: CLINDAMYCIN HYDROCHLORIDE
  6. VENTOLIN [Concomitant]
     Active Substance: ALBUTEROL SULFATE
     Indication: DYSPNOEA
     Dosage: 2 PUFFS
     Route: 065
  7. VENTOLIN [Concomitant]
     Active Substance: ALBUTEROL SULFATE
     Indication: SEASONAL ALLERGY
  8. XOLAIR [Suspect]
     Active Substance: OMALIZUMAB
     Indication: ASTHMA
     Route: 058
     Dates: start: 20121128, end: 20121212
  9. XOLAIR [Suspect]
     Active Substance: OMALIZUMAB
     Route: 058
     Dates: start: 20121217
  10. SINGULAIR [Concomitant]
     Active Substance: MONTELUKAST SODIUM
  11. XOLAIR [Suspect]
     Active Substance: OMALIZUMAB
     Route: 058
     Dates: start: 20121226
  12. QVAR [Concomitant]
     Active Substance: BECLOMETHASONE DIPROPIONATE
     Route: 065
     Dates: start: 20140922
  13. VITAMIN B12 [Concomitant]
     Active Substance: CYANOCOBALAMIN
  14. ALVESCO [Concomitant]
     Active Substance: CICLESONIDE
     Route: 065
  15. VITAMIN B6 [Concomitant]
     Active Substance: PYRIDOXINE HYDROCHLORIDE
  16. PREDNISONE. [Suspect]
     Active Substance: PREDNISONE
     Indication: ASTHMA
     Route: 065

REACTIONS (33)
  - Gastrooesophageal reflux disease [Unknown]
  - Dry mouth [Unknown]
  - Emphysema [Unknown]
  - Blood glucose decreased [Unknown]
  - Wheezing [Unknown]
  - Claustrophobia [Unknown]
  - Fatigue [Unknown]
  - Hypothyroidism [Unknown]
  - Contusion [Not Recovered/Not Resolved]
  - Sinusitis [Recovering/Resolving]
  - Vision blurred [Recovered/Resolved]
  - Injection site pain [Recovered/Resolved]
  - Injection site erythema [Recovered/Resolved]
  - Dyspnoea [Unknown]
  - Asthma [Unknown]
  - Cough [Unknown]
  - Obstructive airways disorder [Unknown]
  - Type 2 diabetes mellitus [Unknown]
  - Dry throat [Unknown]
  - Throat irritation [Unknown]
  - Hypoaesthesia [Unknown]
  - Psoriasis [Unknown]
  - Road traffic accident [Unknown]
  - Dry skin [Unknown]
  - Respiratory tract congestion [Unknown]
  - Oropharyngeal pain [Recovered/Resolved]
  - Middle insomnia [Unknown]
  - Injection site pruritus [Recovered/Resolved]
  - Weight decreased [Unknown]
  - Thyroid disorder [Unknown]
  - Chest discomfort [Unknown]
  - Injection site swelling [Unknown]
  - Insomnia [Unknown]

NARRATIVE: CASE EVENT DATE: 20121128
